FAERS Safety Report 4386731-0 (Version None)
Quarter: 2004Q2

REPORT INFORMATION
  Report Type: 
  Country: None (occurrence: None)
  Receive Date: 20040607
  Receipt Date: 20030611
  Transmission Date: 20050107
  Serious: Yes (Other)
  Sender: FDA-Public Use
  Company Number: 340090

PATIENT
  Age: 19 Year
  Sex: Female
  Weight: 52.6 kg

DRUGS (3)
  1. ACCUTANE [Suspect]
     Indication: ACNE CYSTIC
     Dosage: 40 MG DAILY ORAL
     Route: 048
     Dates: start: 20020624, end: 20020916
  2. DEPO-PROVERA [Concomitant]
  3. ORTHO TRI-CYCLEN [Concomitant]

REACTIONS (1)
  - DEPRESSION [None]
